FAERS Safety Report 9603070 (Version 2)
Quarter: 2013Q4

REPORT INFORMATION
  Report Type: Spontaneous
  Country: US (occurrence: US)
  Receive Date: 20131007
  Receipt Date: 20131101
  Transmission Date: 20140711
  Serious: Yes (Other)
  Sender: FDA-Public Use
  Company Number: US-TEVA-436101USA

PATIENT
  Age: 42 Year
  Sex: Female
  Weight: 64.47 kg

DRUGS (4)
  1. PARAGARD 380A [Suspect]
     Indication: CONTRACEPTION
     Route: 015
     Dates: start: 20130731, end: 20130926
  2. ZYRTEC [Concomitant]
     Indication: HYPERSENSITIVITY
  3. OCELLA [Concomitant]
  4. NASAL SPRAY [Concomitant]
     Indication: HYPERSENSITIVITY

REACTIONS (2)
  - Vaginal haemorrhage [Recovered/Resolved]
  - Device expulsion [Recovered/Resolved]
